FAERS Safety Report 21945181 (Version 2)
Quarter: 2023Q2

REPORT INFORMATION
  Report Type: Spontaneous
  Country: US (occurrence: US)
  Receive Date: 20230202
  Receipt Date: 20230407
  Transmission Date: 20230722
  Serious: No
  Sender: FDA-Public Use
  Company Number: US-KARYOPHARM-2022KPT001394

PATIENT

DRUGS (12)
  1. XPOVIO [Suspect]
     Active Substance: SELINEXOR
     Indication: Plasma cell myeloma
     Dosage: 60 MG, WEEKLY
     Route: 048
     Dates: start: 20221110, end: 202303
  2. POMALYST [Concomitant]
     Active Substance: POMALIDOMIDE
     Dosage: UNK
     Dates: start: 2022
  3. ONDANSETRON [Concomitant]
     Active Substance: ONDANSETRON
  4. LIDOCAINE\PRILOCAINE [Concomitant]
     Active Substance: LIDOCAINE\PRILOCAINE
  5. LETROZOLE [Concomitant]
     Active Substance: LETROZOLE
  6. FUROSEMIDE [Concomitant]
     Active Substance: FUROSEMIDE
  7. FLUCONAZOLE [Concomitant]
     Active Substance: FLUCONAZOLE
  8. DEXAMETHASONE [Concomitant]
     Active Substance: DEXAMETHASONE
  9. ALLOPURINOL [Concomitant]
     Active Substance: ALLOPURINOL
  10. ACYCLOVIR ABBOTT VIAL [Concomitant]
  11. OLANZAPINE [Concomitant]
     Active Substance: OLANZAPINE
  12. PROMETHAZINE [Concomitant]
     Active Substance: PROMETHAZINE HYDROCHLORIDE

REACTIONS (9)
  - Abdominal distension [Not Recovered/Not Resolved]
  - Hepatic enzyme increased [Unknown]
  - Plasma cell myeloma [Unknown]
  - Diarrhoea [Not Recovered/Not Resolved]
  - Decreased appetite [Not Recovered/Not Resolved]
  - Nausea [Not Recovered/Not Resolved]
  - Constipation [Not Recovered/Not Resolved]
  - Fatigue [Unknown]
  - Platelet count decreased [Unknown]

NARRATIVE: CASE EVENT DATE: 20221101
